FAERS Safety Report 9385813 (Version 2)
Quarter: 2013Q3

REPORT INFORMATION
  Report Type: Spontaneous
  Country: BR (occurrence: BR)
  Receive Date: 20130705
  Receipt Date: 20130719
  Transmission Date: 20140515
  Serious: Yes (Hospitalization)
  Sender: FDA-Public Use
  Company Number: BR-B.I. PHARMACEUTICALS,INC./RIDGEFIELD-2013-BR-00791BR

PATIENT
  Age: 67 Year
  Sex: Female
  Weight: 79.4 kg

DRUGS (1)
  1. PRADAXA [Suspect]
     Dosage: 300 MG
     Route: 048

REACTIONS (1)
  - Ischaemic stroke [Unknown]
